FAERS Safety Report 6764077-0 (Version None)
Quarter: 2010Q2

REPORT INFORMATION
  Report Type: 
  Country: None (occurrence: None)
  Receive Date: 20100610
  Receipt Date: 20100604
  Transmission Date: 20101027
  Serious: Yes (Other)
  Sender: FDA-Public Use
  Company Number: US-PFIZER INC-2010060072

PATIENT
  Age: 15 Year
  Sex: Male
  Weight: 35 kg

DRUGS (2)
  1. GENOTROPIN [Suspect]
     Indication: GROWTH HORMONE DEFICIENCY
     Dosage: 1.2 MG, 1X/DAY
     Route: 058
     Dates: start: 20100501, end: 20100510
  2. CONCERTA [Concomitant]
     Dosage: UNK

REACTIONS (3)
  - HEADACHE [None]
  - LETHARGY [None]
  - VOMITING [None]
